FAERS Safety Report 8492264-2 (Version None)
Quarter: 2012Q3

REPORT INFORMATION
  Report Type: 
  Country: None (occurrence: None)
  Receive Date: 20120706
  Receipt Date: 20120702
  Transmission Date: 20120928
  Serious: Yes (Other)
  Sender: FDA-Public Use
  Company Number: AR-ROCHE-1084311

PATIENT
  Sex: Female

DRUGS (1)
  1. XOLAIR [Suspect]
     Indication: ASTHMA
     Dosage: TWO AMPOULES
     Dates: start: 20111017

REACTIONS (4)
  - BLOOD PRESSURE INCREASED [None]
  - ASTHMATIC CRISIS [None]
  - NERVOUSNESS [None]
  - NASOPHARYNGITIS [None]
